FAERS Safety Report 19393461 (Version 2)
Quarter: 2021Q3

REPORT INFORMATION
  Report Type: Spontaneous
  Country: US (occurrence: US)
  Receive Date: 20210609
  Receipt Date: 20210810
  Transmission Date: 20211014
  Serious: Yes (Hospitalization, Congenital Anomaly, Other)
  Sender: FDA-Public Use
  Company Number: NVSC2021US127426

PATIENT
  Age: 8 Month
  Sex: Male
  Weight: 2.52 kg

DRUGS (1)
  1. METHOTREXATE. [Suspect]
     Active Substance: METHOTREXATE
     Indication: FOETAL EXPOSURE DURING PREGNANCY
     Dosage: MATERNAL DOSE: UNK
     Route: 064

REACTIONS (10)
  - Poor feeding infant [Unknown]
  - Elbow synostosis [Unknown]
  - Limb hypoplasia congenital [Unknown]
  - Clinodactyly [Unknown]
  - Talipes [Unknown]
  - Congenital spinal stenosis [Unknown]
  - Congenital pyelocaliectasis [Unknown]
  - Bradycardia foetal [Unknown]
  - Craniosynostosis [Unknown]
  - Foetal exposure during pregnancy [Unknown]
